FAERS Safety Report 23580853 (Version 2)
Quarter: 2024Q1

REPORT INFORMATION
  Report Type: Report from Study
  Country: US (occurrence: US)
  Receive Date: 20240229
  Receipt Date: 20240329
  Transmission Date: 20240409
  Serious: No
  Sender: FDA-Public Use
  Company Number: US-ELI_LILLY_AND_COMPANY-US202402016047

PATIENT
  Age: 63 Year
  Sex: Male

DRUGS (3)
  1. TIRZEPATIDE [Suspect]
     Active Substance: TIRZEPATIDE
     Indication: Type 2 diabetes mellitus
     Dosage: 2.5 MG, UNKNOWN
     Route: 058
  2. TIRZEPATIDE [Suspect]
     Active Substance: TIRZEPATIDE
     Dosage: 5 MG, UNKNOWN
     Route: 058
  3. AMOXICILLIN [Suspect]
     Active Substance: AMOXICILLIN
     Indication: Sinusitis
     Dosage: UNK, UNKNOWN
     Route: 065

REACTIONS (9)
  - Sinusitis [Recovering/Resolving]
  - Dry skin [Unknown]
  - Skin exfoliation [Unknown]
  - Pruritus genital [Unknown]
  - Headache [Recovered/Resolved]
  - Dizziness [Recovered/Resolved]
  - Pruritus [Not Recovered/Not Resolved]
  - Palpitations [Unknown]
  - Urticaria [Not Recovered/Not Resolved]
